FAERS Safety Report 5890016-0 (Version None)
Quarter: 2008Q3

REPORT INFORMATION
  Report Type: 
  Country: None (occurrence: None)
  Receive Date: 20080919
  Receipt Date: 20080909
  Transmission Date: 20090109
  Serious: Yes (Other)
  Sender: FDA-Public Use
  Company Number: US-JNJCH-2008023452

PATIENT
  Age: 5 Year
  Sex: Female

DRUGS (1)
  1. CHILDREN'S SUDAFED NASAL DECONGESTANT [Suspect]
     Indication: DRUG USE FOR UNKNOWN INDICATION
     Dosage: TEXT:1 TEASPOON EVERY 4-5 HOURS
     Route: 048
     Dates: start: 20080908, end: 20080909

REACTIONS (3)
  - HEART RATE INCREASED [None]
  - OVERDOSE [None]
  - TREMOR [None]
